FAERS Safety Report 24005332 (Version 1)
Quarter: 2024Q2

REPORT INFORMATION
  Report Type: Spontaneous
  Country: US (occurrence: None)
  Receive Date: 20240622
  Receipt Date: 20240622
  Transmission Date: 20240716
  Serious: Yes (Hospitalization)
  Sender: FDA-Public Use
  Company Number: None

PATIENT
  Age: 21 Year
  Sex: Male

DRUGS (1)
  1. HERBALS\MUSHROOMS UNSPECIFIED [Suspect]
     Active Substance: HERBALS\MUSHROOMS UNSPECIFIED
     Dates: start: 20240614, end: 20240614

REACTIONS (4)
  - Agitation [None]
  - Aggression [None]
  - Mental status changes [None]
  - Hallucination [None]

NARRATIVE: CASE EVENT DATE: 20240614
